FAERS Safety Report 8003409-2 (Version None)
Quarter: 2011Q4

REPORT INFORMATION
  Report Type: 
  Country: None (occurrence: None)
  Receive Date: 20111222
  Receipt Date: 20111213
  Transmission Date: 20120403
  Serious: Yes (Hospitalization, Other)
  Sender: FDA-Public Use
  Company Number: ES-ABBOTT-11P-144-0883028-00

PATIENT
  Sex: Male

DRUGS (1)
  1. HUMIRA [Suspect]
     Indication: PSORIASIS
     Route: 058
     Dates: start: 20110501, end: 20110712

REACTIONS (12)
  - DERMATITIS EXFOLIATIVE [None]
  - MORGANELLA INFECTION [None]
  - PRURITUS [None]
  - STAPHYLOCOCCAL SEPSIS [None]
  - BLOOD CREATININE INCREASED [None]
  - TACHYCARDIA [None]
  - HYPERGLYCAEMIA [None]
  - ILEUS PARALYTIC [None]
  - PYREXIA [None]
  - MALAISE [None]
  - SKIN EXFOLIATION [None]
  - CHOLESTASIS [None]
